FAERS Safety Report 4848783-0 (Version None)
Quarter: 2005Q4

REPORT INFORMATION
  Report Type: 
  Country: None (occurrence: None)
  Receive Date: 20051206
  Receipt Date: 20051121
  Transmission Date: 20060501
  Serious: Yes (Other)
  Sender: FDA-Public Use
  Company Number: GB200511002173

PATIENT
  Age: 9 Year
  Sex: Male
  Weight: 52.8 kg

DRUGS (1)
  1. STRATTERA [Suspect]
     Indication: ATTENTION DEFICIT/HYPERACTIVITY DISORDER
     Dosage: 60 MG, ORAL
     Route: 048
     Dates: start: 20050901, end: 20051019

REACTIONS (2)
  - DEPRESSED MOOD [None]
  - NEGATIVISM [None]
